FAERS Safety Report 14929164 (Version 1)
Quarter: 2018Q2

REPORT INFORMATION
  Report Type: Spontaneous
  Country: US (occurrence: US)
  Receive Date: 20180523
  Receipt Date: 20180523
  Transmission Date: 20180711
  Serious: No
  Sender: FDA-Public Use
  Company Number: US-TARO-2017TAR00729

PATIENT
  Age: 69 Year
  Sex: Female
  Weight: 72.56 kg

DRUGS (8)
  1. UNSPECIFIED CREAM [Concomitant]
     Active Substance: UNSPECIFIED INGREDIENT
     Route: 061
  2. CRESTOR [Concomitant]
     Active Substance: ROSUVASTATIN CALCIUM
     Dosage: 10 MG, UNK
  3. CLOBETASOL PROPIONATE (HI-TECH PHARMACAL) [Suspect]
     Active Substance: CLOBETASOL PROPIONATE
     Indication: PHOTODERMATOSIS
     Route: 061
  4. TRIAMCINOLONE [Concomitant]
     Active Substance: TRIAMCINOLONE
  5. ZANAFLEX [Concomitant]
     Active Substance: TIZANIDINE HYDROCHLORIDE
     Dosage: UNK, 2X/DAY
  6. UNSPECIFIED NASAL SPRAY [Concomitant]
     Active Substance: UNSPECIFIED INGREDIENT
  7. IMIQUIMOD CREAM 5% [Suspect]
     Active Substance: IMIQUIMOD
     Indication: ACTINIC KERATOSIS
     Dosage: A SMALL AMOUNT, 2X/WEEK
     Route: 061
     Dates: start: 20170620, end: 20170707
  8. ZANAFLEX [Concomitant]
     Active Substance: TIZANIDINE HYDROCHLORIDE
     Dosage: UNK

REACTIONS (5)
  - Scar [Recovering/Resolving]
  - Product administered at inappropriate site [Recovered/Resolved]
  - Rash pustular [Recovering/Resolving]
  - Hypersensitivity [Unknown]
  - Ulcer [Recovering/Resolving]

NARRATIVE: CASE EVENT DATE: 20170620
